FAERS Safety Report 4402171-X (Version None)
Quarter: 2004Q3

REPORT INFORMATION
  Report Type: 
  Country: None (occurrence: None)
  Receive Date: 20040714
  Receipt Date: 20040628
  Transmission Date: 20050211
  Serious: Yes (Disabling, Other)
  Sender: FDA-Public Use
  Company Number: USA030434615

PATIENT
  Age: 35 Year
  Sex: Male

DRUGS (5)
  1. HUMULIN R [Suspect]
     Indication: DIABETES MELLITUS
  2. HUMULIN U [Suspect]
     Indication: DIABETES MELLITUS
     Dosage: 19 U/IN THE MORNING
  3. HUMULIN N [Suspect]
     Indication: DIABETES MELLITUS
  4. HUMALOG [Suspect]
     Indication: DIABETES MELLITUS
     Dates: start: 20031209
  5. LANTUS [Concomitant]

REACTIONS (29)
  - ABNORMAL BEHAVIOUR [None]
  - AGGRESSION [None]
  - ANXIETY [None]
  - DEPRESSED LEVEL OF CONSCIOUSNESS [None]
  - DIABETES MELLITUS INADEQUATE CONTROL [None]
  - DIABETIC NEUROPATHY [None]
  - DISORIENTATION [None]
  - DIZZINESS [None]
  - DYSARTHRIA [None]
  - EYE DISORDER [None]
  - HEAD INJURY [None]
  - HYPERGLYCAEMIA [None]
  - HYPOACUSIS [None]
  - HYPOGLYCAEMIA [None]
  - INSOMNIA [None]
  - JOINT INJURY [None]
  - KETONURIA [None]
  - LOSS OF CONSCIOUSNESS [None]
  - MENTAL DISORDER [None]
  - MICROALBUMINURIA [None]
  - NERVE INJURY [None]
  - PERSONALITY DISORDER [None]
  - RENAL DISORDER [None]
  - RESTLESSNESS [None]
  - SCHIZOPHRENIA [None]
  - STRESS SYMPTOMS [None]
  - TREMOR [None]
  - VICTIM OF CRIME [None]
  - VISION BLURRED [None]
